FAERS Safety Report 6213737-9 (Version None)
Quarter: 2009Q2

REPORT INFORMATION
  Report Type: 
  Country: None (occurrence: None)
  Receive Date: 20090602
  Receipt Date: 20090525
  Transmission Date: 20091009
  Serious: Yes (Death)
  Sender: FDA-Public Use
  Company Number: AX239-09-0211

PATIENT
  Age: 57 Year
  Sex: Female

DRUGS (4)
  1. ABRAXANE [Suspect]
     Indication: BREAST CANCER METASTATIC
     Dosage: 190 MG
     Dates: start: 20090318
  2. LAPATINIB [Suspect]
     Indication: BREAST CANCER METASTATIC
     Dosage: 1000 MG
     Dates: start: 20090318
  3. VERAPAMIL [Concomitant]
  4. LOPRESSOR [Concomitant]

REACTIONS (2)
  - CARDIAC ARREST [None]
  - UNRESPONSIVE TO STIMULI [None]
